FAERS Safety Report 22296257 (Version 2)
Quarter: 2023Q2

REPORT INFORMATION
  Report Type: Spontaneous
  Country: AU (occurrence: AU)
  Receive Date: 20230508
  Receipt Date: 20230510
  Transmission Date: 20230722
  Serious: Yes (Hospitalization, Other)
  Sender: FDA-Public Use
  Company Number: AU-009507513-2305AUS001539

PATIENT
  Age: 38 Year
  Sex: Female

DRUGS (1)
  1. PEMBROLIZUMAB [Suspect]
     Active Substance: PEMBROLIZUMAB
     Indication: Triple negative breast cancer
     Dosage: UNK
     Dates: start: 2022

REACTIONS (7)
  - Febrile neutropenia [Unknown]
  - Tachycardia [Unknown]
  - Hypothyroidism [Unknown]
  - Breast conserving surgery [Unknown]
  - Pancreatitis [Unknown]
  - Rash [Unknown]
  - Arthropathy [Unknown]

NARRATIVE: CASE EVENT DATE: 20220101
